FAERS Safety Report 21562235 (Version 1)
Quarter: 2022Q4

REPORT INFORMATION
  Report Type: Spontaneous
  Country: US (occurrence: None)
  Receive Date: 20221105
  Receipt Date: 20221105
  Transmission Date: 20230113
  Serious: Yes (Hospitalization)
  Sender: FDA-Public Use
  Company Number: None

PATIENT
  Sex: Male
  Weight: 80.6 kg

DRUGS (5)
  1. CYTARABINE [Suspect]
     Active Substance: CYTARABINE
     Indication: Drug therapy
     Dates: end: 20221024
  2. DAUNORUBICIN [Suspect]
     Active Substance: DAUNORUBICIN
     Dates: end: 20221019
  3. MYLOTARG [Suspect]
     Active Substance: GEMTUZUMAB OZOGAMICIN
     Dates: end: 20221019
  4. HYDROCORTISONE [Suspect]
     Active Substance: HYDROCORTISONE
     Indication: Drug therapy
     Dates: end: 20221027
  5. METHOTREXATE [Suspect]
     Active Substance: METHOTREXATE
     Indication: Drug therapy
     Dates: end: 20221027

REACTIONS (13)
  - Fall [None]
  - Asthenia [None]
  - Dysstasia [None]
  - Tachycardia [None]
  - Unresponsive to stimuli [None]
  - Foaming at mouth [None]
  - Grunting [None]
  - Anisocoria [None]
  - Musculoskeletal stiffness [None]
  - Arrhythmia [None]
  - Blood pressure increased [None]
  - Oxygen saturation decreased [None]
  - Seizure [None]

NARRATIVE: CASE EVENT DATE: 20221101
